FAERS Safety Report 13412569 (Version 1)
Quarter: 2017Q2

REPORT INFORMATION
  Report Type: Spontaneous
  Country: US (occurrence: US)
  Receive Date: 20170406
  Receipt Date: 20170406
  Transmission Date: 20170830
  Serious: No
  Sender: FDA-Public Use
  Company Number: None

PATIENT
  Age: 67 Year
  Sex: Female
  Weight: 71.1 kg

DRUGS (2)
  1. SYNTHROID [Concomitant]
     Active Substance: LEVOTHYROXINE SODIUM
  2. ESTRACE [Suspect]
     Active Substance: ESTRADIOL
     Indication: VULVOVAGINAL DRYNESS
     Dosage: ?          OTHER STRENGTH:1 1/2 OZ;?
     Route: 067
     Dates: start: 20170327, end: 20170403

REACTIONS (3)
  - Stress [None]
  - Gait disturbance [None]
  - Application site pain [None]

NARRATIVE: CASE EVENT DATE: 20170403
